FAERS Safety Report 9331729 (Version 2)
Quarter: 2013Q2

REPORT INFORMATION
  Report Type: Spontaneous
  Country: US (occurrence: None)
  Receive Date: 20130603
  Receipt Date: 20130626
  Transmission Date: 20140414
  Serious: Yes (Other)
  Sender: FDA-Public Use
  Company Number: DSU-2013-03447

PATIENT
  Sex: Male

DRUGS (2)
  1. AZOR [Suspect]
     Indication: HYPERTENSION
     Dosage: QAM
     Route: 048
     Dates: start: 2011, end: 20130501
  2. BYSTOLIC [Suspect]
     Indication: HYPERTENSION
     Dosage: QAM

REACTIONS (3)
  - Loss of consciousness [None]
  - Syncope [None]
  - Presyncope [None]
